FAERS Safety Report 17892111 (Version 1)
Quarter: 2020Q2

REPORT INFORMATION
  Report Type: Spontaneous
  Country: JP (occurrence: JP)
  Receive Date: 20200612
  Receipt Date: 20200612
  Transmission Date: 20200714
  Serious: Yes (Other)
  Sender: FDA-Public Use
  Company Number: JP-009507513-2005JPN001941J

PATIENT
  Age: 74 Year
  Sex: Male
  Weight: 67 kg

DRUGS (3)
  1. ESLAX INTRAVENOUS 25MG/2.5ML [Concomitant]
     Active Substance: ROCURONIUM BROMIDE
     Dosage: 25 MILLIGRAM ,INTERMITTENT ADMINISTRATION BY ABOUT 10MG APPROXIMATELY EVERY 30 MINUTE
     Route: 051
  2. BRIDION [Suspect]
     Active Substance: SUGAMMADEX
     Indication: NEUROMUSCULAR BLOCKADE REVERSAL
     Dosage: 200 MILLIGRAM
     Route: 042
  3. BRIDION [Suspect]
     Active Substance: SUGAMMADEX
     Dosage: 200 MILLIGRAM
     Route: 042

REACTIONS (4)
  - Respiratory arrest [Recovered/Resolved]
  - Recurrence of neuromuscular blockade [Unknown]
  - Oxygen saturation decreased [Recovered/Resolved]
  - Depressed level of consciousness [Recovering/Resolving]
